FAERS Safety Report 16821358 (Version 1)
Quarter: 2019Q3

REPORT INFORMATION
  Report Type: Spontaneous
  Country: US (occurrence: US)
  Receive Date: 20190918
  Receipt Date: 20190918
  Transmission Date: 20191005
  Serious: No
  Sender: FDA-Public Use
  Company Number: US-JNJFOC-20190919151

PATIENT
  Age: 30 Year
  Sex: Female
  Weight: 47.67 kg

DRUGS (1)
  1. CHILDRENS TYLENOL [Suspect]
     Active Substance: ACETAMINOPHEN
     Indication: PAIN MANAGEMENT
     Dosage: PROBABLY ABOUT 10ML ONCE A DAY, AS NEEDED
     Route: 048

REACTIONS (3)
  - Product packaging issue [Unknown]
  - Product administered to patient of inappropriate age [Unknown]
  - Off label use [Unknown]
